FAERS Safety Report 18381585 (Version 1)
Quarter: 2020Q4

REPORT INFORMATION
  Report Type: Spontaneous
  Country: US (occurrence: US)
  Receive Date: 20201014
  Receipt Date: 20201014
  Transmission Date: 20210114
  Serious: No
  Sender: FDA-Public Use
  Company Number: US-HIKMA PHARMACEUTICALS USA INC.-US-H14001-20-04155

PATIENT
  Sex: Male
  Weight: 107.05 kg

DRUGS (3)
  1. TESTOSTERONE ENANTHATE. [Suspect]
     Active Substance: TESTOSTERONE ENANTHATE
     Indication: PROLACTIN-PRODUCING PITUITARY TUMOUR
  2. TESTOSTERONE ENANTHATE. [Suspect]
     Active Substance: TESTOSTERONE ENANTHATE
     Indication: SECONDARY HYPOGONADISM
     Route: 030
     Dates: start: 20200508
  3. TESTOSTERONE ENANTHATE. [Suspect]
     Active Substance: TESTOSTERONE ENANTHATE
     Indication: ADRENAL INSUFFICIENCY

REACTIONS (1)
  - Medication error [Recovered/Resolved]
